FAERS Safety Report 15550066 (Version 1)
Quarter: 2018Q4

REPORT INFORMATION
  Report Type: Spontaneous
  Country: US (occurrence: US)
  Receive Date: 20181025
  Receipt Date: 20181025
  Transmission Date: 20190205
  Serious: No
  Sender: FDA-Public Use
  Company Number: US-ASTRAZENECA-2018SF36508

PATIENT
  Age: 71 Year
  Sex: Male

DRUGS (13)
  1. BYDUREON [Suspect]
     Active Substance: EXENATIDE
     Indication: TYPE 2 DIABETES MELLITUS
     Route: 058
     Dates: start: 2018
  2. CELECOXIB. [Concomitant]
     Active Substance: CELECOXIB
     Indication: ARTHRITIS
     Dosage: 200.0MG AS REQUIRED
     Route: 048
  3. ADVAIR DISKUS [Concomitant]
     Active Substance: FLUTICASONE PROPIONATE\SALMETEROL XINAFOATE
     Indication: ASTHMA
     Dosage: AS REQUIRED
     Route: 055
  4. COLCHICINE. [Concomitant]
     Active Substance: COLCHICINE
     Indication: GOUT
     Dosage: 0.6MG AS REQUIRED
     Route: 048
  5. ATENOLOL. [Suspect]
     Active Substance: ATENOLOL
     Route: 048
  6. LISINOPRIL. [Suspect]
     Active Substance: LISINOPRIL
     Route: 048
  7. FUROSEMIDE. [Concomitant]
     Active Substance: FUROSEMIDE
     Indication: HYPERTENSION
     Route: 048
  8. MONTELUKAST [Concomitant]
     Active Substance: MONTELUKAST SODIUM
     Indication: HYPERSENSITIVITY
     Route: 048
  9. ALLOPURINOL. [Concomitant]
     Active Substance: ALLOPURINOL
     Indication: GOUT
     Dosage: 300.0MG AS REQUIRED
     Route: 048
  10. INVOKANA [Concomitant]
     Active Substance: CANAGLIFLOZIN
     Indication: BLOOD GLUCOSE ABNORMAL
     Route: 048
     Dates: start: 2018
  11. CICLOPIROX. [Concomitant]
     Active Substance: CICLOPIROX
     Indication: TINEA CRURIS
     Dosage: AS REQUIRED
     Route: 061
  12. SPIRINOLACTONE [Concomitant]
     Active Substance: SPIRONOLACTONE
     Indication: HYPERTENSION
     Route: 048
  13. GLIMEPIRIDE. [Concomitant]
     Active Substance: GLIMEPIRIDE
     Indication: BLOOD GLUCOSE ABNORMAL
     Route: 048

REACTIONS (5)
  - Type 2 diabetes mellitus [Not Recovered/Not Resolved]
  - Insomnia [Not Recovered/Not Resolved]
  - Limb injury [Not Recovered/Not Resolved]
  - Weight fluctuation [Unknown]
  - Joint injury [Not Recovered/Not Resolved]

NARRATIVE: CASE EVENT DATE: 2018
